FAERS Safety Report 16330488 (Version 1)
Quarter: 2019Q2

REPORT INFORMATION
  Report Type: Spontaneous
  Country: PL (occurrence: PL)
  Receive Date: 20190520
  Receipt Date: 20190520
  Transmission Date: 20190711
  Serious: Yes (Life-Threatening, Hospitalization, Other)
  Sender: FDA-Public Use
  Company Number: PL-ACCORD-127998

PATIENT
  Age: 58 Year
  Sex: Female

DRUGS (5)
  1. MYCOPHENOLIC ACID. [Suspect]
     Active Substance: MYCOPHENOLIC ACID
     Indication: PROPHYLAXIS
  2. BUSULFAN. [Suspect]
     Active Substance: BUSULFAN
     Indication: ACUTE LYMPHOCYTIC LEUKAEMIA RECURRENT
  3. ANTITHYMOCYTE IMMUNOGLOBULIN [Suspect]
     Active Substance: THYMOCYTE IMMUNE GLOBULIN NOS
     Indication: PROPHYLAXIS
     Dosage: ON DAYS -3, -2 AND -1
  4. FLUDARABINE/FLUDARABINE PHOSPHATE [Suspect]
     Active Substance: FLUDARABINE PHOSPHATE
     Indication: ACUTE LYMPHOCYTIC LEUKAEMIA RECURRENT
  5. CICLOSPORIN [Suspect]
     Active Substance: CYCLOSPORINE
     Indication: PROPHYLAXIS

REACTIONS (7)
  - Candida infection [Unknown]
  - Agranulocytosis [Unknown]
  - Venous thrombosis [Unknown]
  - Device related infection [Unknown]
  - Enterococcal infection [Unknown]
  - Endocarditis [Recovered/Resolved]
  - Soft tissue infection [Unknown]
